FAERS Safety Report 24971780 (Version 1)
Quarter: 2025Q1

REPORT INFORMATION
  Report Type: Spontaneous
  Country: US (occurrence: None)
  Receive Date: 20250214
  Receipt Date: 20250214
  Transmission Date: 20250409
  Serious: Yes (Hospitalization)
  Sender: FDA-CTU
  Company Number: None

PATIENT
  Age: 62 Year
  Sex: Female
  Weight: 61.3 kg

DRUGS (13)
  1. ISTODAX [Suspect]
     Active Substance: ROMIDEPSIN
     Indication: Peripheral T-cell lymphoma unspecified stage IV
     Route: 042
     Dates: start: 20250109, end: 20250123
  2. ISTODAX [Suspect]
     Active Substance: ROMIDEPSIN
     Indication: Adult T-cell lymphoma/leukaemia
  3. BENDAMUSTINE [Suspect]
     Active Substance: BENDAMUSTINE
  4. HYDROCORTISONE [Concomitant]
     Active Substance: HYDROCORTISONE
  5. Triamconolone (Kenalog) 0.1% ointment [Concomitant]
  6. Acyclovir (Zovirax) 400mg tablet once daily [Concomitant]
  7. Ibuprofen 200mg BID [Concomitant]
  8. Rifabutin (Mycobutin) 150mg capsule BID [Concomitant]
  9. Fexofenadine (Allegra) 180mg tablet once daily [Concomitant]
  10. Pantoprazole 40mg tablet (DR/EC) once daily [Concomitant]
  11. Docusate sodium 100mg capsule once daily [Concomitant]
  12. Enalapril 10mg once daily [Concomitant]
  13. Bacitracin 500 unit/gram packet [Concomitant]

REACTIONS (9)
  - Failure to thrive [None]
  - Peripheral T-cell lymphoma unspecified stage IV [None]
  - Adult T-cell lymphoma/leukaemia [None]
  - Malignant neoplasm progression [None]
  - Malignant mesenteric neoplasm [None]
  - Aortic disorder [None]
  - Neoplasm malignant [None]
  - Cutaneous T-cell lymphoma [None]
  - Abdominal pain [None]

NARRATIVE: CASE EVENT DATE: 20250131
